FAERS Safety Report 4482771-1 (Version None)
Quarter: 2004Q3

REPORT INFORMATION
  Report Type: 
  Country: None (occurrence: None)
  Receive Date: 20040921
  Receipt Date: 20040716
  Transmission Date: 20050211
  Serious: Yes (Hospitalization)
  Sender: FDA-Public Use
  Company Number: 163-20785-04070445(0)

PATIENT
  Age: 65 Year
  Sex: Male

DRUGS (7)
  1. THALOMID [Suspect]
     Indication: MULTIPLE MYELOMA
     Dosage: 100 MG, DAILY, ORAL
     Route: 048
     Dates: start: 20040517
  2. VINCRISTINE [Concomitant]
  3. ADRIAMYCIN PFS [Concomitant]
  4. DEXAMETHASONE [Concomitant]
  5. CYCLOPHOSPHAMIDE [Concomitant]
  6. ETOPOSIDE [Concomitant]
  7. CISPLATIN [Concomitant]

REACTIONS (2)
  - PNEUMONIA [None]
  - SINUSITIS [None]
